FAERS Safety Report 7305607-X (Version None)
Quarter: 2011Q1

REPORT INFORMATION
  Report Type: 
  Country: None (occurrence: None)
  Receive Date: 20110209
  Receipt Date: 20110126
  Transmission Date: 20110831
  Serious: Yes (Death)
  Sender: FDA-Public Use
  Company Number: MPS1-1000440

PATIENT
  Age: 33 Year
  Sex: Male

DRUGS (1)
  1. ALDURAZYME [Suspect]
     Indication: MUCOPOLYSACCHARIDOSIS
     Dosage: 100 U/KG, 1XW, INTRAVENOUS
     Route: 042
     Dates: start: 20010831

REACTIONS (1)
  - POST PROCEDURAL COMPLICATION [None]
